FAERS Safety Report 9248613 (Version 1)
Quarter: 2013Q1

REPORT INFORMATION
  Report Type: Spontaneous
  Country: US (occurrence: None)
  Receive Date: 20130305
  Receipt Date: 20130305
  Transmission Date: 20140127
  Serious: Yes (Hospitalization)
  Sender: FDA-Public Use
  Company Number: 163-21880-12053389

PATIENT
  Age: 61 Year
  Sex: Female
  Weight: 53.89 kg

DRUGS (7)
  1. REVLIMID (LENALIDOMIDE) (15 MILIGRAM, CAPSULES) [Suspect]
     Indication: PLASMA CELL MYELOMA
     Dosage: 15MG, DAILY FOR 21 DAYS EVERY 28
     Route: 048
     Dates: start: 20110330, end: 20110630
  2. DEXAMETHASONE (DEXAMETHASONE) [Concomitant]
  3. OXYCONTIN (OXYCODONE HYDROCHLORIDE) [Concomitant]
  4. OXYCODONE (OXYCODONE) [Concomitant]
  5. CYCLOPHOSPHAMIDE (CYCLOPHOSPHAMIDE) [Concomitant]
  6. LEVAQUIN (LEXOFLOXACIN) [Concomitant]
  7. VELCADE (UNKNOWN) [Concomitant]

REACTIONS (4)
  - Pneumonia [None]
  - Pneumonia [None]
  - Neuropathy peripheral [None]
  - Neutropenia [None]
